FAERS Safety Report 6504279-1 (Version None)
Quarter: 2009Q4

REPORT INFORMATION
  Report Type: 
  Country: None (occurrence: None)
  Receive Date: 20091217
  Receipt Date: 20091209
  Transmission Date: 20100525
  Serious: Yes (Hospitalization, Other)
  Sender: FDA-Public Use
  Company Number: CO-WYE-H12608409

PATIENT
  Sex: Male
  Weight: 75 kg

DRUGS (4)
  1. ADVIL [Suspect]
     Indication: ANALGESIC THERAPY
     Dosage: UNKNOWN
     Route: 048
  2. ACETYLSALICYLIC ACID [Suspect]
     Indication: PAIN
     Dosage: UNKNOWN
     Route: 048
  3. IBUPROFEN [Suspect]
     Indication: PAIN
     Dosage: UNKNOWN
     Route: 048
  4. MOBIC [Suspect]
     Indication: PAIN
     Dosage: UNKNOWN
     Route: 048

REACTIONS (3)
  - BLOOD CREATININE INCREASED [None]
  - DRUG ABUSE [None]
  - TUBULOINTERSTITIAL NEPHRITIS [None]
